FAERS Safety Report 4463230-9 (Version None)
Quarter: 2004Q3

REPORT INFORMATION
  Report Type: 
  Country: None (occurrence: None)
  Receive Date: 20040930
  Receipt Date: 20040927
  Transmission Date: 20050211
  Serious: Yes (Hospitalization)
  Sender: FDA-Public Use
  Company Number: PHBS2004TW12883

PATIENT

DRUGS (2)
  1. EXELON [Suspect]
     Indication: DEMENTIA
     Dosage: 6 MG/D
     Route: 048
     Dates: start: 20030210, end: 20040808
  2. QUETIAPINE [Concomitant]
     Route: 065

REACTIONS (1)
  - DYSTONIA [None]
